FAERS Safety Report 12009107 (Version 1)
Quarter: 2016Q1

REPORT INFORMATION
  Report Type: Spontaneous
  Country: US (occurrence: None)
  Receive Date: 20160204
  Receipt Date: 20160204
  Transmission Date: 20160526
  Serious: Yes (Death, Other)
  Sender: FDA-Public Use
  Company Number: None

PATIENT
  Age: 33 Year
  Sex: Male
  Weight: 97.52 kg

DRUGS (3)
  1. IBUPROFEN. [Concomitant]
     Active Substance: IBUPROFEN
  2. PROPRANOLOL [Suspect]
     Active Substance: PROPRANOLOL\PROPRANOLOL HYDROCHLORIDE
     Indication: HYPERTENSION
     Dosage: 20 MG 1 PILL 1 PER DAY BY MOUTH
     Route: 048
     Dates: start: 20060510, end: 20060517
  3. ST. JOHNS WORT [Concomitant]
     Active Substance: HYPERICUM PERFORATUM

REACTIONS (8)
  - Drug interaction [None]
  - Serotonin syndrome [None]
  - Anger [None]
  - Psychotic disorder [None]
  - Imprisonment [None]
  - Impulse-control disorder [None]
  - Homicide [None]
  - Suicide attempt [None]

NARRATIVE: CASE EVENT DATE: 20060516
